FAERS Safety Report 9994646 (Version 4)
Quarter: 2014Q2

REPORT INFORMATION
  Report Type: Spontaneous
  Country: BE (occurrence: BE)
  Receive Date: 20140311
  Receipt Date: 20140618
  Transmission Date: 20141212
  Serious: Yes (Hospitalization)
  Sender: FDA-Public Use
  Company Number: BE-BEH-2014041061

PATIENT
  Age: 63 Year
  Sex: Male

DRUGS (1)
  1. HIZENTRA [Suspect]
     Dosage: 30 ML = 6 G
     Route: 058
     Dates: start: 20140211, end: 20140219

REACTIONS (2)
  - Investigation [Unknown]
  - Platelet count decreased [Unknown]
